FAERS Safety Report 5034381-5 (Version None)
Quarter: 2006Q2

REPORT INFORMATION
  Report Type: 
  Country: None (occurrence: None)
  Receive Date: 20060518
  Receipt Date: 20050906
  Transmission Date: 20061013
  Serious: Yes (Other)
  Sender: FDA-Public Use
  Company Number: 2005103057

PATIENT
  Age: 33 Year
  Sex: Female
  Weight: 53.978 kg

DRUGS (1)
  1. DEPO-PROVERA [Suspect]
     Indication: CONTRACEPTION
     Dosage: 150 MG (150 MG,FIRST AND SINGLE INJECTION),INTRAMUSCULAR
     Route: 030
     Dates: start: 20050413, end: 20050413

REACTIONS (1)
  - UNINTENDED PREGNANCY [None]
